FAERS Safety Report 14423680 (Version 1)
Quarter: 2018Q1

REPORT INFORMATION
  Report Type: Spontaneous
  Country: US (occurrence: US)
  Receive Date: 20180123
  Receipt Date: 20180123
  Transmission Date: 20180509
  Serious: No
  Sender: FDA-Public Use
  Company Number: US-TEVA-767847ACC

PATIENT
  Sex: Female

DRUGS (15)
  1. MIRTAZAPINE. [Suspect]
     Active Substance: MIRTAZAPINE
     Indication: DEPRESSION
     Dosage: 7.5 MG TABLET  (HALF TABLET) DISSOLVE IN MOUTH, TOOK ONCE
     Dates: start: 20170427, end: 20170427
  2. CALCIUM 1200 MG [Concomitant]
  3. B6 [Concomitant]
     Active Substance: PYRIDOXINE HYDROCHLORIDE
  4. EVISTA [Concomitant]
     Active Substance: RALOXIFENE HYDROCHLORIDE
     Dosage: ONE PER DAY
  5. E-400 [Concomitant]
  6. VITAMIN B12 [Concomitant]
     Active Substance: CYANOCOBALAMIN
  7. C-500MG [Concomitant]
  8. BIOTIN [Concomitant]
     Active Substance: BIOTIN
  9. GINKGO BILOBA [Concomitant]
     Active Substance: GINKGO
  10. NEXIUM [Concomitant]
     Active Substance: ESOMEPRAZOLE MAGNESIUM
  11. MIRTAZAPINE. [Suspect]
     Active Substance: MIRTAZAPINE
     Indication: ANXIETY
  12. MIRTAZAPINE. [Suspect]
     Active Substance: MIRTAZAPINE
     Indication: INSOMNIA
  13. VITAMIN D3 [Concomitant]
     Active Substance: CHOLECALCIFEROL
  14. MULTIVITAMINS W/MINERALS [Concomitant]
     Active Substance: MINERALS\VITAMINS
  15. FISH OIL [Concomitant]
     Active Substance: FISH OIL

REACTIONS (6)
  - Somnolence [Recovered/Resolved]
  - Feeling abnormal [Recovered/Resolved]
  - Balance disorder [Unknown]
  - Nervousness [Unknown]
  - Wrong technique in product usage process [Unknown]
  - Product use complaint [Unknown]
